FAERS Safety Report 9155558 (Version 1)
Quarter: 2013Q1

REPORT INFORMATION
  Report Type: Spontaneous
  Country: GR (occurrence: GR)
  Receive Date: 20130311
  Receipt Date: 20130311
  Transmission Date: 20140127
  Serious: Yes (Hospitalization, Other)
  Sender: FDA-Public Use
  Company Number: GR-ASTRAZENECA-2013SE14585

PATIENT
  Age: 39 Year
  Sex: Male

DRUGS (3)
  1. BRILIQUE [Suspect]
     Indication: ACUTE CORONARY SYNDROME
     Route: 048
     Dates: start: 20130217, end: 20130227
  2. ASPIRIN [Concomitant]
     Indication: ACUTE CORONARY SYNDROME
     Route: 048
     Dates: start: 20130217, end: 20130227
  3. ARIXTRA [Concomitant]
     Indication: ACUTE CORONARY SYNDROME
     Route: 048

REACTIONS (4)
  - Suprapubic pain [Not Recovered/Not Resolved]
  - Thrombosis [Unknown]
  - Nosocomial infection [Unknown]
  - Haematuria [Not Recovered/Not Resolved]
